FAERS Safety Report 5786476-6 (Version None)
Quarter: 2008Q2

REPORT INFORMATION
  Report Type: 
  Country: None (occurrence: None)
  Receive Date: 20080624
  Receipt Date: 20080613
  Transmission Date: 20081010
  Serious: No
  Sender: FDA-Public Use
  Company Number: JP-PFIZER INC-2008046383

PATIENT
  Sex: Male
  Weight: 46 kg

DRUGS (12)
  1. UNASYN [Suspect]
     Indication: URINARY TRACT INFECTION
     Route: 042
     Dates: start: 20080425, end: 20080425
  2. NITRODERM [Concomitant]
     Route: 062
  3. MEPTIN [Concomitant]
     Dates: start: 20070619
  4. FULCALIQ [Concomitant]
     Route: 042
  5. MINERALIN [Concomitant]
     Route: 042
  6. FRAGMIN [Concomitant]
     Route: 042
  7. STRONG NEO-MINOPHAGEN C [Concomitant]
     Route: 042
  8. FAMOTIDINE [Concomitant]
     Route: 042
  9. LASIX [Concomitant]
     Route: 042
  10. SOLDACTONE [Concomitant]
     Route: 042
     Dates: start: 20080319, end: 20080506
  11. BISOLVON [Concomitant]
  12. PERDIPINE [Concomitant]
     Route: 042

REACTIONS (2)
  - BRADYCARDIA [None]
  - CHEST DISCOMFORT [None]
